FAERS Safety Report 9263566 (Version 1)
Quarter: 2013Q2

REPORT INFORMATION
  Report Type: Spontaneous
  Country: US (occurrence: US)
  Receive Date: 20130430
  Receipt Date: 20130430
  Transmission Date: 20140414
  Serious: Yes (Hospitalization, Other)
  Sender: FDA-Public Use
  Company Number: US-PFIZER INC-2013130546

PATIENT
  Age: 61 Year
  Sex: Male
  Weight: 61.22 kg

DRUGS (18)
  1. EFFEXOR XR [Suspect]
     Indication: DEPRESSION
     Dosage: 75 MG, UNK
  2. EFFEXOR XR [Suspect]
     Dosage: 150 MG, UNK
     Dates: end: 2013
  3. ATENOLOL [Concomitant]
     Dosage: UNK
  4. ASPIRIN [Concomitant]
     Dosage: UNK
  5. PRAVASTATIN [Concomitant]
     Dosage: UNK
  6. GEMFIBROZIL [Concomitant]
     Dosage: UNK
  7. CARAFATE [Concomitant]
     Dosage: UNK
  8. RANITIDINE [Concomitant]
     Dosage: UNK
  9. GLIMEPIRIDE [Concomitant]
     Dosage: UNK
  10. IBUPROFEN [Concomitant]
     Dosage: UNK
  11. TYLENOL [Concomitant]
     Dosage: UNK
  12. FLOVENT [Concomitant]
     Dosage: UNK
  13. SINGULAIR [Concomitant]
     Dosage: UNK
  14. METHOCARBAMOL [Concomitant]
     Dosage: UNK
  15. ZYRTEC [Concomitant]
     Indication: HYPERSENSITIVITY
     Dosage: UNK
  16. BENADRYL [Concomitant]
     Dosage: UNK
  17. REMERON [Concomitant]
     Dosage: UNK
  18. XANAX [Concomitant]
     Dosage: UNK

REACTIONS (5)
  - Organising pneumonia [Unknown]
  - Eosinophilic pneumonia chronic [Unknown]
  - White blood cell count abnormal [Unknown]
  - Eosinophil count increased [Unknown]
  - Platelet count increased [Unknown]
